FAERS Safety Report 5358552-3 (Version None)
Quarter: 2007Q2

REPORT INFORMATION
  Report Type: 
  Country: None (occurrence: None)
  Receive Date: 20070613
  Receipt Date: 20070613
  Transmission Date: 20071010
  Serious: No
  Sender: FDA-Public Use
  Company Number: None

PATIENT
  Age: 6 Year
  Sex: Male
  Weight: 21 kg

DRUGS (1)
  1. PHENYTOIN [Suspect]
     Indication: EPILEPSY
     Dosage: 7 ML 3 A DAY BUCCAL
     Route: 002

REACTIONS (3)
  - CONVULSION [None]
  - DRUG EFFECT DECREASED [None]
  - EPISTAXIS [None]
